FAERS Safety Report 8840099 (Version 2)
Quarter: 2012Q4

REPORT INFORMATION
  Report Type: 
  Country: DE (occurrence: DE)
  Receive Date: 20121015
  Receipt Date: 20121122
  Transmission Date: 20130627
  Serious: Yes (Hospitalization, Other)
  Sender: FDA-Public Use
  Company Number: DE-ROCHE-1144967

PATIENT
  Age: 48 Year
  Sex: Male
  Weight: 95 kg

DRUGS (3)
  1. ZELBORAF [Suspect]
     Indication: MALIGNANT MELANOMA
     Route: 048
     Dates: start: 20120228, end: 20121002
  2. BISOPROLOL [Concomitant]
     Indication: HYPERTENSION
     Route: 048
  3. FERRO SANOL DUODENAL [Concomitant]
     Indication: ANAEMIA
     Route: 048
     Dates: start: 20120621, end: 20120722

REACTIONS (1)
  - Abscess [Recovered/Resolved]
